FAERS Safety Report 7773102-X (Version None)
Quarter: 2011Q3

REPORT INFORMATION
  Report Type: 
  Country: None (occurrence: None)
  Receive Date: 20110922
  Receipt Date: 20100827
  Transmission Date: 20111222
  Serious: No
  Sender: FDA-Public Use
  Company Number: US-ASTRAZENECA-2007UW27738

PATIENT
  Age: 497 Month
  Sex: Female
  Weight: 68 kg

DRUGS (17)
  1. LIPITOR [Concomitant]
     Dosage: 20-40 MG
     Dates: start: 20040917
  2. SEROQUEL [Suspect]
     Dosage: 25-100 MG
     Route: 048
     Dates: start: 20050221, end: 20070101
  3. ZOLOFT [Concomitant]
     Dosage: 100 MG DISPENSED
     Dates: start: 20040901
  4. DEPAKOTE [Concomitant]
     Dosage: 500 MG DISPENSED
     Dates: start: 20050221
  5. CELEXA [Concomitant]
     Dates: start: 20080101, end: 20100101
  6. SEROQUEL [Suspect]
     Dosage: 25-100 MG
     Route: 048
     Dates: start: 20050221, end: 20070101
  7. SEROQUEL [Suspect]
     Dosage: 25-100 MG
     Route: 048
     Dates: start: 20050221, end: 20070101
  8. TRAMADOL HCL [Concomitant]
     Dosage: 50 MG DISPENSED
     Dates: start: 20051013
  9. SEROQUEL [Suspect]
     Indication: ANXIETY
     Route: 048
     Dates: start: 20050221, end: 20080204
  10. SEROQUEL [Suspect]
     Indication: BIPOLAR DISORDER
     Route: 048
     Dates: start: 20050221, end: 20080204
  11. SEROQUEL [Suspect]
     Indication: DEPRESSION
     Route: 048
     Dates: start: 20050221, end: 20080204
  12. DIAZEPAM [Concomitant]
     Dosage: 5 MG DISPENSED
     Dates: start: 20050906
  13. HYDROCODONE [Concomitant]
     Dosage: 5 MG DISPENSED
     Dates: start: 20040621
  14. SEROQUEL [Suspect]
     Indication: MENTAL DISORDER
     Route: 048
     Dates: start: 20050221, end: 20080204
  15. SEROQUEL [Suspect]
     Dosage: 25-100 MG
     Route: 048
     Dates: start: 20050221, end: 20070101
  16. WELLBUTRIN XL [Concomitant]
     Dosage: 300 MG DISPENSED
     Dates: start: 20050323
  17. ACETAMINOPHEN [Concomitant]
     Dosage: 500 MG DISPENSED
     Dates: start: 20040621

REACTIONS (5)
  - BLOOD CHOLESTEROL INCREASED [None]
  - DIABETIC COMPLICATION [None]
  - HYPERLIPIDAEMIA [None]
  - DIABETES MELLITUS [None]
  - TYPE 2 DIABETES MELLITUS [None]
